FAERS Safety Report 8922863 (Version 1)
Quarter: 2012Q4

REPORT INFORMATION
  Report Type: 
  Country: US (occurrence: US)
  Receive Date: 20121123
  Receipt Date: 20121123
  Transmission Date: 20130627
  Serious: Yes (Other)
  Sender: FDA-Public Use
  Company Number: US-ROCHE-1090112

PATIENT
  Age: 22 Year
  Sex: Male
  Weight: 170 kg

DRUGS (3)
  1. ACCUTANE [Suspect]
     Indication: ACNE
     Route: 065
     Dates: start: 200106, end: 200108
  2. ACCUTANE [Suspect]
     Route: 065
     Dates: start: 200111, end: 200204
  3. ACCUTANE [Suspect]
     Route: 065
     Dates: start: 1982, end: 1983

REACTIONS (6)
  - Proctitis ulcerative [Unknown]
  - Crohn^s disease [Unknown]
  - Inflammatory bowel disease [Unknown]
  - Anal fistula [Unknown]
  - Anal abscess [Unknown]
  - Irritable bowel syndrome [Unknown]
